FAERS Safety Report 5830926-3 (Version None)
Quarter: 2008Q3

REPORT INFORMATION
  Report Type: 
  Country: None (occurrence: None)
  Receive Date: 20080801
  Receipt Date: 20080205
  Transmission Date: 20090109
  Serious: No
  Sender: FDA-Public Use
  Company Number: US-BRISTOL-MYERS SQUIBB COMPANY-14066187

PATIENT
  Age: 83 Year
  Sex: Female
  Weight: 50 kg

DRUGS (8)
  1. COUMADIN [Suspect]
     Indication: ATRIAL FIBRILLATION
     Dosage: HELD FROM 12-JAN-2008 TO 16-JAN-2008,REDUCED TO 4 MG ON WED,7.5MG ON MON+FRI AND 5MG REMAINING DAYS.
     Route: 048
  2. DILTIAZEM HCL [Concomitant]
  3. DIGITEK [Concomitant]
  4. SYNTHROID [Concomitant]
  5. CALCIUM + VITAMIN D [Concomitant]
  6. POTASSIUM CHLORIDE [Concomitant]
  7. MULTI-VITAMIN [Concomitant]
  8. VIVELLE [Concomitant]

REACTIONS (1)
  - INTERNATIONAL NORMALISED RATIO FLUCTUATION [None]
